FAERS Safety Report 4997109-0 (Version None)
Quarter: 2006Q2

REPORT INFORMATION
  Report Type: 
  Country: None (occurrence: None)
  Receive Date: 20060508
  Receipt Date: 20060508
  Transmission Date: 20061013
  Serious: Yes (Other)
  Sender: FDA-Public Use
  Company Number: None

PATIENT
  Age: 45 Year
  Sex: Female

DRUGS (1)
  1. ESTRADIOL [Suspect]
     Indication: HORMONE REPLACEMENT THERAPY
     Dosage: APPLY 1 PATCH EVERY 7 DAYS

REACTIONS (3)
  - APPLICATION SITE BURN [None]
  - APPLICATION SITE SCAR [None]
  - PHARMACEUTICAL PRODUCT COMPLAINT [None]
